FAERS Safety Report 4641950-0 (Version None)
Quarter: 2005Q2

REPORT INFORMATION
  Report Type: 
  Country: None (occurrence: None)
  Receive Date: 20050421
  Receipt Date: 20050411
  Transmission Date: 20051028
  Serious: No
  Sender: FDA-Public Use
  Company Number: TPA2005A00315

PATIENT
  Sex: Female

DRUGS (1)
  1. ACTOS [Suspect]
     Dosage: 45 MG, 1 IN 1 D, PER ORAL
     Route: 048

REACTIONS (2)
  - MEDICATION ERROR [None]
  - OEDEMA [None]
